FAERS Safety Report 9795946 (Version 2)
Quarter: 2014Q2

REPORT INFORMATION
  Report Type: Spontaneous
  Country: US (occurrence: US)
  Receive Date: 20140103
  Receipt Date: 20140429
  Transmission Date: 20141212
  Serious: Yes (Death, Hospitalization, Other)
  Sender: FDA-Public Use
  Company Number: US-JNJFOC-20140100159

PATIENT
  Age: 62 Year
  Sex: Female
  Weight: 94.35 kg

DRUGS (3)
  1. STELARA [Suspect]
     Indication: PSORIASIS
     Dosage: 8-12 WEEKS
     Route: 058
     Dates: start: 20110103, end: 20130812
  2. STELARA [Suspect]
     Indication: AUTOIMMUNE DISORDER
     Dosage: 8-12 WEEKS
     Route: 058
     Dates: start: 20110103, end: 20130812
  3. HUMIRA [Suspect]
     Indication: PRODUCT USED FOR UNKNOWN INDICATION
     Dosage: 8-12 WEEKS
     Route: 065
     Dates: start: 20110103

REACTIONS (12)
  - Metastatic renal cell carcinoma [Fatal]
  - Supraventricular tachycardia [Unknown]
  - Skin lesion [Unknown]
  - Abnormal loss of weight [Unknown]
  - Cough [Unknown]
  - Sinus congestion [Unknown]
  - Headache [Unknown]
  - Ear infection [Recovered/Resolved]
  - Abdominal discomfort [Unknown]
  - Pyrexia [Unknown]
  - Anxiety [Unknown]
  - Obsessive-compulsive disorder [Unknown]
